FAERS Safety Report 23816439 (Version 1)
Quarter: 2024Q2

REPORT INFORMATION
  Report Type: Spontaneous
  Country: CA (occurrence: CA)
  Receive Date: 20240503
  Receipt Date: 20240503
  Transmission Date: 20240716
  Serious: Yes (Hospitalization)
  Sender: FDA-Public Use
  Company Number: CA-TEVA-VS-3193014

PATIENT
  Age: 66 Year
  Sex: Male

DRUGS (4)
  1. HYDROXYZINE [Suspect]
     Active Substance: HYDROXYZINE HYDROCHLORIDE
     Indication: Drug use disorder
     Dosage: TIME INTERVAL: 0.33333333 DAYS
     Route: 048
  2. METHADONE HYDROCHLORIDE [Suspect]
     Active Substance: METHADONE HYDROCHLORIDE
     Indication: Drug use disorder
     Route: 048
  3. BUPRENORPHINE AND NALOXONE [Suspect]
     Active Substance: BUPRENORPHINE HYDROCHLORIDE\NALOXONE HYDROCHLORIDE
     Indication: Drug use disorder
     Route: 048
  4. METOPROLOL [Suspect]
     Active Substance: METOPROLOL
     Indication: Hypertension
     Dosage: TEVA-METOPROLOL UNCOATED
     Route: 048

REACTIONS (3)
  - Electrocardiogram QT prolonged [Recovering/Resolving]
  - Syncope [Recovering/Resolving]
  - Torsade de pointes [Recovering/Resolving]
